FAERS Safety Report 6339746-7 (Version None)
Quarter: 2009Q3

REPORT INFORMATION
  Report Type: 
  Country: None (occurrence: None)
  Receive Date: 20090903
  Receipt Date: 20090825
  Transmission Date: 20100115
  Serious: Yes (Hospitalization)
  Sender: FDA-Public Use
  Company Number: IE-B.I. PHARMACEUTICALS,INC./RIDGEFIELD-2009-UK-00754UK

PATIENT
  Sex: Female

DRUGS (8)
  1. COMBIVENT UDV (7/52/2) [Suspect]
     Indication: EMPHYSEMA
     Route: 055
     Dates: start: 20090401, end: 20090813
  2. SERETIDE [Concomitant]
     Indication: EMPHYSEMA
     Dosage: 1000 MCG
     Route: 055
     Dates: start: 20080501
  3. SPIRIVA [Concomitant]
     Indication: EMPHYSEMA
     Dosage: 18 MCG
     Route: 055
     Dates: start: 20080501
  4. SINGULAIR [Concomitant]
     Indication: EMPHYSEMA
     Dosage: 10 MG
     Route: 048
     Dates: start: 20090401
  5. LIPITOR [Concomitant]
     Indication: BLOOD CHOLESTEROL INCREASED
     Dosage: 20 MG
     Route: 048
     Dates: start: 20080401
  6. OSTEOFOS D3 [Concomitant]
     Indication: OSTEOPOROSIS PROPHYLAXIS
     Dosage: 1 SACHET ONCE DAILY
     Route: 048
     Dates: start: 20090201
  7. PANTOPRAZOLE SODIUM [Concomitant]
     Indication: DRUG ABUSE
     Dosage: 20 MG
     Route: 048
     Dates: start: 20080501
  8. XANAX [Concomitant]
     Indication: ANXIETY
     Dosage: 10 MG
     Route: 048
     Dates: start: 20081201

REACTIONS (3)
  - CHRONIC OBSTRUCTIVE PULMONARY DISEASE [None]
  - HYPOKALAEMIA [None]
  - RESPIRATORY FAILURE [None]
